FAERS Safety Report 24690359 (Version 1)
Quarter: 2024Q4

REPORT INFORMATION
  Report Type: Spontaneous
  Country: GB (occurrence: GB)
  Receive Date: 20241203
  Receipt Date: 20241203
  Transmission Date: 20250114
  Serious: Yes (Other)
  Sender: MYLAN
  Company Number: GB-MYLANLABS-2024M1105831

PATIENT
  Age: 26 Year
  Sex: Female

DRUGS (5)
  1. OLANZAPINE [Suspect]
     Active Substance: OLANZAPINE
     Indication: Borderline personality disorder
     Dosage: 5 MILLIGRAM
     Route: 065
  2. ZUCLOPENTHIXOL [Suspect]
     Active Substance: ZUCLOPENTHIXOL
     Indication: Borderline personality disorder
     Dosage: 400 MILLIGRAM, QW
     Route: 065
  3. ZUCLOPENTHIXOL [Suspect]
     Active Substance: ZUCLOPENTHIXOL
     Dosage: 300-400 MG
     Route: 065
  4. CARIPRAZINE [Concomitant]
     Active Substance: CARIPRAZINE
     Indication: Borderline personality disorder
     Dosage: 6 MILLIGRAM
     Route: 065
  5. CARIPRAZINE [Concomitant]
     Active Substance: CARIPRAZINE
     Dosage: UNK, DOSE REDUCED
     Route: 065

REACTIONS (2)
  - Hyperprolactinaemia [Unknown]
  - Weight increased [Unknown]
